FAERS Safety Report 20345025 (Version 6)
Quarter: 2022Q3

REPORT INFORMATION
  Report Type: Report from Study
  Country: CA (occurrence: CA)
  Receive Date: 20220118
  Receipt Date: 20220720
  Transmission Date: 20221027
  Serious: Yes (Other)
  Sender: FDA-Public Use
  Company Number: CA-JNJFOC-20220122584

PATIENT
  Age: 54 Year
  Sex: Female
  Weight: 70 kg

DRUGS (1)
  1. REMICADE [Suspect]
     Active Substance: INFLIXIMAB
     Indication: Crohn^s disease
     Dosage: EXPIRATION DATE 31-AUG-2024, 01-AUG-2024?DOSE: 700 MG
     Route: 042
     Dates: start: 20190220

REACTIONS (9)
  - Tooth abscess [Unknown]
  - Rectal haemorrhage [Recovered/Resolved]
  - Dental restoration failure [Unknown]
  - Papilloma viral infection [Recovered/Resolved]
  - Faeces pale [Recovered/Resolved]
  - Mucous stools [Recovered/Resolved]
  - Inflammation [Recovered/Resolved]
  - Constipation [Recovered/Resolved]
  - Off label use [Unknown]

NARRATIVE: CASE EVENT DATE: 20190220
